FAERS Safety Report 18940145 (Version 1)
Quarter: 2021Q1

REPORT INFORMATION
  Report Type: Other
  Country: CA (occurrence: CA)
  Receive Date: 20210224
  Receipt Date: 20210224
  Transmission Date: 20210420
  Serious: Yes (Other)
  Sender: FDA-Public Use
  Company Number: CA-CELLTRION INC.-2021CA002241

PATIENT

DRUGS (14)
  1. DEXILANT [Concomitant]
     Active Substance: DEXLANSOPRAZOLE
  2. DIPHENHYDRAMINE HYDROCHLORIDE. [Concomitant]
     Active Substance: DIPHENHYDRAMINE HYDROCHLORIDE
     Indication: PREMEDICATION
     Dosage: 50 MG
     Route: 048
  3. ACETYLSALICYLIC ACID [Concomitant]
     Active Substance: ASPIRIN
  4. METHOTREXATE. [Concomitant]
     Active Substance: METHOTREXATE
     Route: 048
  5. NAPROXEN. [Concomitant]
     Active Substance: NAPROXEN
  6. CALCIUM CARBONATE AND VITAMIN D3 [Concomitant]
     Active Substance: CALCIUM CARBONATE\CHOLECALCIFEROL
  7. FOLIC ACID. [Concomitant]
     Active Substance: FOLIC ACID
  8. IRON [Concomitant]
     Active Substance: IRON
  9. METHYLPREDNISOLONE. [Concomitant]
     Active Substance: METHYLPREDNISOLONE
     Indication: PREMEDICATION
     Dosage: 100 MG
     Route: 042
  10. RITUXIMAB (UNKNOWN) [Suspect]
     Active Substance: RITUXIMAB
     Indication: SYSTEMIC LUPUS ERYTHEMATOSUS
     Dosage: 1000 MG
     Route: 042
  11. HYDROXYCHLOROQUINE SULFATE. [Concomitant]
     Active Substance: HYDROXYCHLOROQUINE SULFATE
  12. PROZAC [Concomitant]
     Active Substance: FLUOXETINE HYDROCHLORIDE
  13. ACETAMINOPHEN. [Concomitant]
     Active Substance: ACETAMINOPHEN
     Indication: PREMEDICATION
     Dosage: 650 MG
     Route: 048
  14. ARAVA [Concomitant]
     Active Substance: LEFLUNOMIDE

REACTIONS (8)
  - Off label use [Unknown]
  - Infection [Unknown]
  - Thrombocytopenia [Unknown]
  - Intentional product use issue [Unknown]
  - Complement deficiency disease [Unknown]
  - Alopecia [Unknown]
  - Arthritis [Unknown]
  - Mouth ulceration [Unknown]
